FAERS Safety Report 18587305 (Version 3)
Quarter: 2020Q4

REPORT INFORMATION
  Report Type: Spontaneous
  Country: GB (occurrence: GB)
  Receive Date: 20201207
  Receipt Date: 20201217
  Transmission Date: 20210114
  Serious: Yes (Other)
  Sender: FDA-Public Use
  Company Number: GB-ALLERGAN-2041536US

PATIENT
  Sex: Male

DRUGS (4)
  1. AVASTIN [Concomitant]
     Active Substance: BEVACIZUMAB
     Dosage: UNK
     Dates: start: 2019
  2. OZURDEX [Suspect]
     Active Substance: DEXAMETHASONE
     Indication: EXUDATIVE RETINOPATHY
     Dosage: 0.7 MG, SINGLE
     Route: 031
     Dates: start: 20190612, end: 20190612
  3. OZURDEX [Suspect]
     Active Substance: DEXAMETHASONE
     Indication: EXUDATIVE RETINOPATHY
     Dosage: 07 MG, SINGLE
     Route: 031
     Dates: start: 20191125, end: 20191125
  4. OZURDEX [Suspect]
     Active Substance: DEXAMETHASONE
     Indication: EXUDATIVE RETINOPATHY
     Dosage: 0.7 MG, SINGLE
     Route: 031
     Dates: start: 20161006, end: 20161006

REACTIONS (2)
  - Retinal injury [Unknown]
  - Off label use [Unknown]
